FAERS Safety Report 12584193 (Version 3)
Quarter: 2016Q4

REPORT INFORMATION
  Report Type: Report from Study
  Country: US (occurrence: US)
  Receive Date: 20160722
  Receipt Date: 20161028
  Transmission Date: 20170207
  Serious: Yes (Other)
  Sender: FDA-Public Use
  Company Number: US-SAOL THERAPEUTICS-2016SAO00260

PATIENT
  Age: 62 Year
  Sex: Female

DRUGS (5)
  1. MORPHINE [Suspect]
     Active Substance: MORPHINE
     Dosage: 0.5694 MG, \DAY
     Route: 037
  2. COMPOUNDED BACLOFEN [Suspect]
     Active Substance: BACLOFEN
     Dosage: 182.75 ?G, \DAY
     Dates: start: 20150113
  3. COMPOUNDED BACLOFEN [Suspect]
     Active Substance: BACLOFEN
     Indication: MUSCLE SPASTICITY
     Dosage: 179.82 ?G, \DAY
     Route: 037
  4. MORPHINE [Suspect]
     Active Substance: MORPHINE
     Dosage: 0.5787 MG, \DAY
     Dates: start: 20150113
  5. COMPOUNDED HYDROCODONE [Suspect]
     Active Substance: HYDROCODONE
     Route: 037

REACTIONS (2)
  - Medical device site infection [Recovered/Resolved]
  - Wound dehiscence [Recovered/Resolved]

NARRATIVE: CASE EVENT DATE: 20150113
